FAERS Safety Report 8404897-X (Version None)
Quarter: 2012Q2

REPORT INFORMATION
  Report Type: 
  Country: None (occurrence: None)
  Receive Date: 20120601
  Receipt Date: 20111115
  Transmission Date: 20120825
  Serious: No
  Sender: FDA-Public Use
  Company Number: US-ASTRAZENECA-2011SE64663

PATIENT
  Age: 61 Year
  Sex: Female
  Weight: 106.6 kg

DRUGS (3)
  1. CRESTOR [Suspect]
     Route: 048
  2. ATACAND HCT [Suspect]
     Dosage: 16/12.5 MG EVERYDAY
     Route: 048
  3. NEXIUM [Suspect]
     Route: 048

REACTIONS (5)
  - NEUROPATHIC ARTHROPATHY [None]
  - BONE DISORDER [None]
  - HEADACHE [None]
  - SINUSITIS [None]
  - FOOT FRACTURE [None]
